FAERS Safety Report 12447650 (Version 1)
Quarter: 2016Q2

REPORT INFORMATION
  Report Type: Report from Study
  Country: US (occurrence: US)
  Receive Date: 20160608
  Receipt Date: 20160608
  Transmission Date: 20160815
  Serious: Yes (Other)
  Sender: FDA-Public Use
  Company Number: US-JAZZ-2016-US-010359

PATIENT
  Age: 49 Year
  Sex: Male

DRUGS (3)
  1. CLOZAPINE ODT [Suspect]
     Active Substance: CLOZAPINE
     Dosage: UNK MG, QD
     Route: 048
     Dates: start: 201210
  2. CLOZAPINE ODT [Suspect]
     Active Substance: CLOZAPINE
     Dosage: UNK MG, QD
     Route: 048
  3. HALOPERIDOL. [Concomitant]
     Active Substance: HALOPERIDOL

REACTIONS (1)
  - Neutropenia [Unknown]

NARRATIVE: CASE EVENT DATE: 20160429
